FAERS Safety Report 25908593 (Version 1)
Quarter: 2025Q4

REPORT INFORMATION
  Report Type: Spontaneous
  Country: US (occurrence: US)
  Receive Date: 20251010
  Receipt Date: 20251010
  Transmission Date: 20260118
  Serious: No
  Sender: ABBVIE
  Company Number: US-ABBVIE-6486207

PATIENT
  Sex: Female

DRUGS (2)
  1. RESTASIS [Suspect]
     Active Substance: CYCLOSPORINE
     Indication: Dry eye
     Dosage: ONCE IN THE MORNING AND ONCE AT NIGHT
     Route: 047
     Dates: start: 2024, end: 2025
  2. CEQUA [Concomitant]
     Active Substance: CYCLOSPORINE
     Indication: Dry eye
     Dosage: USED FEW FREE SAMPLES OF CEQUA

REACTIONS (1)
  - Drug ineffective [Unknown]
